FAERS Safety Report 6091885-4 (Version None)
Quarter: 2009Q1

REPORT INFORMATION
  Report Type: 
  Country: None (occurrence: None)
  Receive Date: 20090225
  Receipt Date: 20080912
  Transmission Date: 20090719
  Serious: No
  Sender: FDA-Public Use
  Company Number: A0747285A

PATIENT
  Sex: Female

DRUGS (6)
  1. VALTREX [Suspect]
     Indication: GENITAL HERPES
     Dosage: 1G PER DAY
     Route: 048
     Dates: start: 19980101
  2. ACYCLOVIR [Suspect]
     Indication: GENITAL HERPES
     Dosage: 200MG FOUR TIMES PER DAY
     Route: 048
     Dates: end: 20080601
  3. CELEBREX [Suspect]
     Indication: OSTEOARTHRITIS
     Dosage: 2CAP PER DAY
     Route: 048
     Dates: start: 20050101, end: 20080501
  4. ASPIRIN [Concomitant]
  5. FEMHRT [Concomitant]
  6. AMITRIPTYLINE [Concomitant]

REACTIONS (9)
  - ABASIA [None]
  - ALOPECIA [None]
  - ARTHRALGIA [None]
  - BACTERIAL INFECTION [None]
  - DRUG INEFFECTIVE [None]
  - FUNGAL INFECTION [None]
  - HERPES VIRUS INFECTION [None]
  - OSTEOARTHRITIS [None]
  - THERAPY REGIMEN CHANGED [None]
